FAERS Safety Report 5994978-2 (Version None)
Quarter: 2008Q4

REPORT INFORMATION
  Report Type: 
  Country: None (occurrence: None)
  Receive Date: 20081212
  Receipt Date: 20081205
  Transmission Date: 20090506
  Serious: Yes (Hospitalization)
  Sender: FDA-Public Use
  Company Number: ES-JNJFOC-20081201668

PATIENT
  Age: 67 Year
  Sex: Male

DRUGS (7)
  1. TAVANIC [Suspect]
     Indication: DRUG USE FOR UNKNOWN INDICATION
     Route: 065
  2. PANTOPRAZOLE SODIUM [Concomitant]
     Route: 065
  3. CARVEDILOL [Concomitant]
     Route: 065
  4. ASPIRIN [Concomitant]
     Route: 065
  5. AMLODIPINE [Concomitant]
     Route: 065
  6. ISOSORBIDE DINITRATE [Concomitant]
     Route: 065
  7. SIMVASTATIN [Concomitant]
     Route: 065

REACTIONS (3)
  - KIDNEY ENLARGEMENT [None]
  - RENAL CYST [None]
  - TUBULOINTERSTITIAL NEPHRITIS [None]
